FAERS Safety Report 6574750-5 (Version None)
Quarter: 2010Q1

REPORT INFORMATION
  Report Type: 
  Country: None (occurrence: None)
  Receive Date: 20100209
  Receipt Date: 20100127
  Transmission Date: 20100710
  Serious: Yes (Hospitalization)
  Sender: FDA-Public Use
  Company Number: PHHY2010FR04709

PATIENT
  Sex: Male

DRUGS (1)
  1. AREDIA [Suspect]
     Indication: FIBROUS DYSPLASIA OF BONE
     Dosage: UNK
     Dates: start: 20000101, end: 20060101

REACTIONS (8)
  - CREATININE RENAL CLEARANCE DECREASED [None]
  - ECZEMA NUMMULAR [None]
  - INFLAMMATORY PAIN [None]
  - NECK PAIN [None]
  - ONYCHOLYSIS [None]
  - PAIN IN EXTREMITY [None]
  - PSORIASIS [None]
  - PSORIATIC ARTHROPATHY [None]
